FAERS Safety Report 13607285 (Version 1)
Quarter: 2017Q2

REPORT INFORMATION
  Report Type: Spontaneous
  Country: US (occurrence: US)
  Receive Date: 20170602
  Receipt Date: 20170602
  Transmission Date: 20170830
  Serious: No
  Sender: FDA-Public Use
  Company Number: US-PFIZER INC-2015348771

PATIENT
  Sex: Female

DRUGS (3)
  1. PROMETHAZINE HCL [Suspect]
     Active Substance: PROMETHAZINE HYDROCHLORIDE
     Dosage: UNK
  2. IOHEXOL [Suspect]
     Active Substance: IOHEXOL
     Dosage: UNK
  3. MEPERIDINE [Suspect]
     Active Substance: MEPERIDINE
     Dosage: UNK

REACTIONS (1)
  - Drug hypersensitivity [Unknown]
